FAERS Safety Report 5875580-X (Version None)
Quarter: 2008Q3

REPORT INFORMATION
  Report Type: 
  Country: None (occurrence: None)
  Receive Date: 20080909
  Receipt Date: 20080827
  Transmission Date: 20090109
  Serious: Yes (Other)
  Sender: FDA-Public Use
  Company Number: TR-ELI_LILLY_AND_COMPANY-TR200804003394

PATIENT
  Age: 55 Year
  Sex: Male
  Weight: 75 kg

DRUGS (5)
  1. HUMALOG [Suspect]
     Indication: TYPE 2 DIABETES MELLITUS
     Dosage: 38 IU, EACH MORNING
     Route: 058
  2. HUMALOG [Suspect]
     Dosage: 18 IU, EACH EVENING
     Route: 058
  3. COUMADIN [Concomitant]
     Dosage: UNK, DAILY (1/D)
     Dates: start: 20050101
  4. DIURETICS [Concomitant]
     Dosage: UNK, DAILY (1/D)
     Dates: start: 20050101
  5. CORASPIN [Concomitant]
     Dosage: UNK, DAILY (1/D)
     Dates: start: 20050101

REACTIONS (3)
  - BLOOD GLUCOSE DECREASED [None]
  - BLOOD GLUCOSE INCREASED [None]
  - PULMONARY EMBOLISM [None]
